FAERS Safety Report 5089159-3 (Version None)
Quarter: 2006Q3

REPORT INFORMATION
  Report Type: 
  Country: None (occurrence: None)
  Receive Date: 20060822
  Receipt Date: 20060815
  Transmission Date: 20061208
  Serious: Yes (Hospitalization)
  Sender: FDA-Public Use
  Company Number: GXKR2006GB04807

PATIENT
  Age: 84 Year
  Sex: Female

DRUGS (6)
  1. CEPHALEXIN [Suspect]
     Indication: URINARY TRACT INFECTION
     Dosage: ORAL
     Route: 048
  2. TRIMETHOPRIM [Suspect]
     Indication: URINARY TRACT INFECTION
     Dosage: 200 MG, ORAL
     Route: 048
     Dates: end: 20060623
  3. BENDROFLUMETHAZIDE (BENDROFLUMETHIAZIDE) [Concomitant]
  4. OMEPRAZOLE [Concomitant]
  5. ACETAMINOPHEN [Concomitant]
  6. PROPRANOLOL [Concomitant]

REACTIONS (3)
  - DISEASE RECURRENCE [None]
  - ERYTHEMA MULTIFORME [None]
  - URINARY TRACT INFECTION [None]
